FAERS Safety Report 21442859 (Version 4)
Quarter: 2022Q4

REPORT INFORMATION
  Report Type: Report from Study
  Country: US (occurrence: US)
  Receive Date: 20221012
  Receipt Date: 20221027
  Transmission Date: 20230112
  Serious: Yes (Death, Other)
  Sender: FDA-Public Use
  Company Number: US-ABBVIE-4150655

PATIENT
  Weight: 68.04 kg

DRUGS (6)
  1. HUMIRA [Suspect]
     Active Substance: ADALIMUMAB
     Indication: Crohn^s disease
     Dosage: STRENGTH: 40 MG
     Route: 058
     Dates: start: 2015, end: 20220924
  2. HUMIRA [Suspect]
     Active Substance: ADALIMUMAB
     Indication: Psoriatic arthropathy
  3. Pfizer Covid-19 Vaccination [Concomitant]
     Indication: COVID-19 immunisation
     Dosage: PFIZER
     Route: 030
     Dates: start: 20210120, end: 20210120
  4. Pfizer Covid-19 Vaccination [Concomitant]
     Indication: COVID-19 immunisation
     Dosage: PFIZER
     Route: 030
     Dates: start: 20220508, end: 20220508
  5. Pfizer Covid-19 Vaccination [Concomitant]
     Indication: COVID-19 immunisation
     Dosage: PFIZER
     Route: 030
     Dates: start: 20211019, end: 20211019
  6. Pfizer Covid-19 Vaccination [Concomitant]
     Indication: COVID-19 immunisation
     Dates: start: 20220508, end: 20220508

REACTIONS (5)
  - Chronic kidney disease [Fatal]
  - Squamous cell carcinoma [Unknown]
  - Psoriatic arthropathy [Not Recovered/Not Resolved]
  - Multimorbidity [Not Recovered/Not Resolved]
  - Atrial fibrillation [Unknown]
